FAERS Safety Report 5130792-8 (Version None)
Quarter: 2006Q4

REPORT INFORMATION
  Report Type: 
  Country: None (occurrence: None)
  Receive Date: 20061019
  Receipt Date: 20060918
  Transmission Date: 20070319
  Serious: Yes (Disabling, Other)
  Sender: FDA-Public Use
  Company Number: US-BRISTOL-MYERS SQUIBB COMPANY-13518709

PATIENT
  Age: 87 Year
  Sex: Female

DRUGS (2)
  1. KENALOG-40 [Suspect]
     Indication: MACULAR DEGENERATION
     Dosage: LOT NUMBER COULD BE 6C13553, EXPIRATION DATE FEB-2008.
     Route: 031
     Dates: start: 20060914
  2. VIGAMOX [Concomitant]

REACTIONS (1)
  - ENDOPHTHALMITIS [None]
